FAERS Safety Report 8299572-9 (Version None)
Quarter: 2012Q2

REPORT INFORMATION
  Report Type: 
  Country: None (occurrence: None)
  Receive Date: 20120419
  Receipt Date: 20120412
  Transmission Date: 20120825
  Serious: Yes (Hospitalization)
  Sender: FDA-Public Use
  Company Number: US-GLAXOSMITHKLINE-A0794847A

PATIENT
  Age: 60 Year
  Sex: Male
  Weight: 70.5 kg

DRUGS (5)
  1. AVANDIA [Suspect]
     Indication: DIABETES MELLITUS
     Dosage: 2MG PER DAY
     Route: 048
     Dates: start: 20030101, end: 20070401
  2. GLUCOPHAGE [Concomitant]
  3. NORVASC [Concomitant]
  4. AVANDAMET [Suspect]
     Indication: DIABETES MELLITUS
     Route: 048
  5. LIPITOR [Concomitant]

REACTIONS (4)
  - MYOCARDIAL INFARCTION [None]
  - CORONARY ARTERY OCCLUSION [None]
  - CARDIAC DISORDER [None]
  - HIP FRACTURE [None]
